FAERS Safety Report 9003657 (Version 1)
Quarter: 2013Q1

REPORT INFORMATION
  Report Type: Spontaneous
  Country: US (occurrence: US)
  Receive Date: 20130108
  Receipt Date: 20130108
  Transmission Date: 20140127
  Serious: No
  Sender: FDA-Public Use
  Company Number: US-GLAXOSMITHKLINE-A0953914A

PATIENT
  Age: 82 Year
  Sex: Female

DRUGS (9)
  1. LOVAZA [Suspect]
     Indication: BLOOD TRIGLYCERIDES INCREASED
     Dosage: 4CAP PER DAY
     Route: 048
     Dates: start: 2009
  2. CRESTOR [Concomitant]
  3. TOPROL [Concomitant]
  4. UNSPECIFIED MEDICATION [Concomitant]
  5. SYNTHROID [Concomitant]
  6. CALCIUM [Concomitant]
  7. VITAMIN D [Concomitant]
  8. CENTRUM [Concomitant]
  9. BONIVA [Concomitant]

REACTIONS (1)
  - Pain in extremity [Recovering/Resolving]
